FAERS Safety Report 16367835 (Version 3)
Quarter: 2019Q3

REPORT INFORMATION
  Report Type: Report from Study
  Country: US (occurrence: US)
  Receive Date: 20190529
  Receipt Date: 20190828
  Transmission Date: 20191004
  Serious: Yes (Hospitalization)
  Sender: FDA-Public Use
  Company Number: US-BIOGEN-2019BI00743405

PATIENT
  Age: 57 Year
  Sex: Male
  Weight: 87.62 kg

DRUGS (17)
  1. VITAMIN B COMPLEX [Concomitant]
     Active Substance: CYANOCOBALAMIN\DEXPANTHENOL\NIACINAMIDE\PYRIDOXINE HYDROCHLORIDE\RIBOFLAVIN 5^-PHOSPHATE SODIUM\THIAMINE HYDROCHLORIDE\VITAMIN B COMPLEX
     Indication: PRODUCT USED FOR UNKNOWN INDICATION
     Route: 048
  2. CHOLECALCIFEROL [Concomitant]
     Active Substance: CHOLECALCIFEROL
     Indication: VITAMIN SUPPLEMENTATION
     Route: 048
     Dates: start: 20180413
  3. ACETAMINOPHEN. [Concomitant]
     Active Substance: ACETAMINOPHEN
     Indication: PAIN
     Dosage: TAKE ONE TO TWO TABLETS BY MOUTH EVERY 8 HOURS AS NEEDED
     Route: 048
     Dates: start: 20180625
  4. MEPILEX [Concomitant]
     Active Substance: SILICON
     Dosage: DRESSING MEPILEX BORDER HEEL 8.7 INX9.1IN, DRESSING TO AFFECTED AREA EVERY THIRD DAY
     Route: 065
     Dates: start: 20190206
  5. BACLOFEN. [Concomitant]
     Active Substance: BACLOFEN
     Indication: PRODUCT USED FOR UNKNOWN INDICATION
     Dosage: 40MG/20ML KIT, INJECT 40ML INTRATHECALLY DAILY
     Route: 037
     Dates: start: 20181120
  6. ATORVASTATIN CALCIUM. [Concomitant]
     Active Substance: ATORVASTATIN CALCIUM
     Indication: HYPERCHOLESTEROLAEMIA
     Route: 048
     Dates: start: 20180808
  7. PREGABALIN. [Concomitant]
     Active Substance: PREGABALIN
     Indication: PRODUCT USED FOR UNKNOWN INDICATION
     Route: 048
     Dates: start: 20181121
  8. AMITRIPTYLINE HCL [Concomitant]
     Active Substance: AMITRIPTYLINE
     Indication: SLEEP DISORDER
     Route: 048
     Dates: start: 20180504
  9. MEPILEX [Concomitant]
     Active Substance: SILICON
     Indication: PRODUCT USED FOR UNKNOWN INDICATION
     Dosage: DRESSING MEPILEX BORDER 4X4 IN, DRESSING TO AFFECTED AREA EVERY OTHER DAY, APPLY TO SACRAL AREA
     Route: 065
     Dates: start: 20190104
  10. TYSABRI [Suspect]
     Active Substance: NATALIZUMAB
     Indication: MULTIPLE SCLEROSIS
     Route: 065
     Dates: start: 20091214, end: 20190708
  11. AMANTADINE. [Concomitant]
     Active Substance: AMANTADINE HYDROCHLORIDE
     Indication: MULTIPLE SCLEROSIS
     Route: 048
     Dates: start: 20181116
  12. MEPILEX [Concomitant]
     Active Substance: SILICON
     Dosage: DRESSING MEPILEX BORDER 6.3X7.9IN, DRESSING TO AFFECTED AREA EVERY OTHER DAY
     Route: 065
     Dates: start: 20190114
  13. CLINDAMYCIN. [Concomitant]
     Active Substance: CLINDAMYCIN
     Indication: PRODUCT USED FOR UNKNOWN INDICATION
     Dosage: 40MG/20ML KIT, INJECT 40ML INTRATHECALLY DAILY
     Route: 037
     Dates: start: 20181120
  14. ZINC OXIDE 20% [Concomitant]
     Indication: PRODUCT USED FOR UNKNOWN INDICATION
     Dosage: APPLY THIN FILM TO AFFECTED AREA
     Route: 065
     Dates: start: 20181116
  15. POLYHEXANIDE/BETAINE (PRONTOSAN) [Concomitant]
     Indication: PRODUCT USED FOR UNKNOWN INDICATION
     Dosage: APPLY MODERATE AMT AFFECTED AREA EVERY OTHER DAY
     Route: 065
     Dates: start: 20190114
  16. VANICREAM [Concomitant]
     Active Substance: TITANIUM DIOXIDE\ZINC OXIDE
     Indication: DRY SKIN
     Dosage: APPLY LIBERAL AMT TO AFFECTED AREA
     Route: 061
     Dates: start: 20180507
  17. KRILL OIL [Concomitant]
     Active Substance: DIETARY SUPPLEMENT\KRILL OIL
     Indication: PRODUCT USED FOR UNKNOWN INDICATION
     Dosage: 1-2 TABS 2 PER 1 DAY
     Route: 048

REACTIONS (10)
  - Pyelonephritis [Recovered/Resolved]
  - Encephalopathy [Unknown]
  - Candida infection [Unknown]
  - Staphylococcal sepsis [Recovered/Resolved]
  - Enterococcus test positive [Unknown]
  - Hydronephrosis [Unknown]
  - Abscess [Unknown]
  - Ureterolithiasis [Unknown]
  - Leukocytosis [Unknown]
  - Candida test positive [Unknown]

NARRATIVE: CASE EVENT DATE: 2019
